FAERS Safety Report 25775709 (Version 1)
Quarter: 2025Q3

REPORT INFORMATION
  Report Type: Spontaneous
  Country: EU (occurrence: EU)
  Receive Date: 20250909
  Receipt Date: 20250909
  Transmission Date: 20251020
  Serious: Yes (Other)
  Sender: PFIZER
  Company Number: None

PATIENT
  Age: 63 Year
  Sex: Female
  Weight: 70 kg

DRUGS (2)
  1. LINEZOLID [Suspect]
     Active Substance: LINEZOLID
     Indication: Soft tissue infection
     Route: 048
     Dates: start: 20250608, end: 20250811
  2. LINEZOLID [Suspect]
     Active Substance: LINEZOLID
     Indication: Device related infection

REACTIONS (6)
  - Leukocytosis [Unknown]
  - Impaired gastric emptying [Unknown]
  - Lactic acidosis [Unknown]
  - Gastrointestinal disorder [Unknown]
  - Off label use [Unknown]
  - Off label use [Unknown]

NARRATIVE: CASE EVENT DATE: 20250810
